FAERS Safety Report 10731597 (Version 2)
Quarter: 2015Q2

REPORT INFORMATION
  Report Type: Spontaneous
  Country: IT (occurrence: IT)
  Receive Date: 20150123
  Receipt Date: 20150420
  Transmission Date: 20150821
  Serious: Yes (Hospitalization)
  Sender: FDA-Public Use
  Company Number: IT-AMGEN-ITASP2015006202

PATIENT
  Age: 71 Year
  Sex: Male
  Weight: 92 kg

DRUGS (3)
  1. ENBREL [Suspect]
     Active Substance: ETANERCEPT
     Dosage: 50 MG, WEEKLY CONTINUOUSLY
     Route: 058
     Dates: start: 2008, end: 20141207
  2. ENBREL [Suspect]
     Active Substance: ETANERCEPT
     Indication: PSORIATIC ARTHROPATHY
     Dosage: 50 MG, WEEKLY WITH CYCLES OF 6 MONTHS
     Route: 058
     Dates: start: 20050301, end: 2008
  3. METHOTREXATO                       /00113802/ [Concomitant]
     Active Substance: METHOTREXATE SODIUM
     Dosage: 5 MG, UNK
     Route: 048
     Dates: start: 2012, end: 201309

REACTIONS (1)
  - Diffuse large B-cell lymphoma recurrent [Not Recovered/Not Resolved]

NARRATIVE: CASE EVENT DATE: 20141122
